FAERS Safety Report 12060115 (Version 2)
Quarter: 2016Q1

REPORT INFORMATION
  Report Type: Report from Study
  Country: GR (occurrence: GR)
  Receive Date: 20160210
  Receipt Date: 20160218
  Transmission Date: 20160526
  Serious: Yes (Life-Threatening, Hospitalization, Other)
  Sender: FDA-Public Use
  Company Number: GR-CELGENE-GRC-2016016233

PATIENT
  Age: 78 Year
  Sex: Male
  Weight: 70 kg

DRUGS (19)
  1. CARFILZOMIB [Suspect]
     Active Substance: CARFILZOMIB
     Indication: PLASMA CELL MYELOMA
     Route: 065
     Dates: start: 20110413
  2. FLAGYL [Concomitant]
     Active Substance: METRONIDAZOLE\METRONIDAZOLE HYDROCHLORIDE
     Indication: ANTIBIOTIC PROPHYLAXIS
     Dosage: 21.4286 MICROGRAM
     Route: 048
     Dates: start: 20120719
  3. ZOMETA [Concomitant]
     Active Substance: ZOLEDRONIC ACID
     Indication: PLASMA CELL MYELOMA
     Dosage: 20 MILLIGRAM
     Route: 041
     Dates: start: 20110316
  4. KARVEZIDE [Concomitant]
     Active Substance: HYDROCHLOROTHIAZIDE\IRBESARTAN
     Indication: HYPERTENSION
     Dosage: 150+12.5
     Route: 048
     Dates: start: 20120719
  5. PARIET [Concomitant]
     Active Substance: RABEPRAZOLE SODIUM
     Indication: GASTROOESOPHAGEAL REFLUX PROPHYLAXIS
     Dosage: 100 MILLIGRAM
     Route: 048
     Dates: start: 20100622
  6. EUTHYROX [Concomitant]
     Active Substance: LEVOTHYROXINE SODIUM
     Indication: HYPOTHYROIDISM
     Route: 048
     Dates: start: 20120719
  7. FERRO SANOL DUODENAL [Concomitant]
     Active Substance: FERROUS GLYCINE SULFATE
     Indication: ANAEMIA
     Route: 048
     Dates: start: 20120719
  8. VALTREX [Concomitant]
     Active Substance: VALACYCLOVIR HYDROCHLORIDE
     Indication: ANTIVIRAL TREATMENT
     Route: 048
     Dates: start: 20110316
  9. DEXAMETHASONE. [Suspect]
     Active Substance: DEXAMETHASONE
     Indication: PLASMA CELL MYELOMA
     Route: 065
     Dates: start: 20110317
  10. ARANESP [Concomitant]
     Active Substance: DARBEPOETIN ALFA
     Indication: ANAEMIA
     Route: 058
     Dates: start: 20110728
  11. JANUMET [Concomitant]
     Active Substance: METFORMIN HYDROCHLORIDE\SITAGLIPTIN PHOSPHATE
     Indication: DIABETES MELLITUS
     Dosage: 50+850
     Route: 048
     Dates: start: 20101013
  12. DEXAMETHASONE. [Suspect]
     Active Substance: DEXAMETHASONE
     Dosage: 20 MILLIGRAM
     Route: 065
     Dates: start: 20151207
  13. OMEPRAZOLE. [Concomitant]
     Active Substance: OMEPRAZOLE
     Indication: GASTRITIS PROPHYLAXIS
     Dosage: 100 MICROGRAM
     Route: 048
     Dates: start: 20110316
  14. SINTROM [Concomitant]
     Active Substance: ACENOCOUMAROL
     Indication: ANAEMIA PROPHYLAXIS
     Dosage: 500 MILLIGRAM
     Route: 048
     Dates: start: 20141016
  15. REVLIMID [Suspect]
     Active Substance: LENALIDOMIDE
     Route: 048
     Dates: start: 20151206
  16. BACTRIMEL [Concomitant]
     Active Substance: SULFAMETHOXAZOLE\TRIMETHOPRIM
     Indication: ANTIBIOTIC PROPHYLAXIS
     Dosage: 800+160
     Route: 048
     Dates: start: 20110316
  17. EPOETIN ALFA [Concomitant]
     Active Substance: ERYTHROPOIETIN
     Indication: ANAEMIA
     Route: 058
     Dates: start: 20141211
  18. REVLIMID [Suspect]
     Active Substance: LENALIDOMIDE
     Indication: PLASMA CELL MYELOMA
     Route: 048
     Dates: start: 20110317
  19. SINTROM [Concomitant]
     Active Substance: ACENOCOUMAROL
     Route: 048
     Dates: start: 20141017

REACTIONS (2)
  - Respiratory tract infection [Not Recovered/Not Resolved]
  - Non-Hodgkin^s lymphoma [Recovered/Resolved]

NARRATIVE: CASE EVENT DATE: 20160120
